FAERS Safety Report 17285989 (Version 2)
Quarter: 2020Q1

REPORT INFORMATION
  Report Type: Spontaneous
  Country: CA (occurrence: CA)
  Receive Date: 20200118
  Receipt Date: 20200122
  Transmission Date: 20200409
  Serious: Yes (Other)
  Sender: FDA-Public Use
  Company Number: CA-ROCHE-2523754

PATIENT
  Age: 57 Year
  Sex: Male

DRUGS (7)
  1. XOLAIR [Suspect]
     Active Substance: OMALIZUMAB
     Dosage: 225 MG, BIW
     Route: 058
     Dates: start: 20190812
  2. PREDNISONE. [Concomitant]
     Active Substance: PREDNISONE
     Indication: ASTHMA
     Route: 065
  3. XOLAIR [Suspect]
     Active Substance: OMALIZUMAB
     Indication: ASTHMA
     Dosage: 225 MG, BIW
     Route: 058
     Dates: start: 20181105
  4. BREO ELLIPTA [Concomitant]
     Active Substance: FLUTICASONE FUROATE\VILANTEROL TRIFENATATE
     Indication: PRODUCT USED FOR UNKNOWN INDICATION
     Dosage: 1 DF, QD
     Route: 055
     Dates: start: 201805
  5. XOLAIR [Suspect]
     Active Substance: OMALIZUMAB
     Dosage: 300 MG, BIW
     Route: 058
     Dates: start: 20190115
  6. VENTOLIN [Concomitant]
     Active Substance: ALBUTEROL SULFATE
     Indication: PRODUCT USED FOR UNKNOWN INDICATION
     Dosage: 2 DF, QD
     Route: 055
     Dates: start: 2008
  7. XOLAIR [Suspect]
     Active Substance: OMALIZUMAB
     Dosage: 225 MG, BIW
     Route: 058
     Dates: start: 20190802

REACTIONS (23)
  - Obstructive airways disorder [Not Recovered/Not Resolved]
  - Asthma [Recovering/Resolving]
  - Upper-airway cough syndrome [Unknown]
  - Chest discomfort [Recovering/Resolving]
  - Inappropriate schedule of product administration [Unknown]
  - Blood immunoglobulin E decreased [Unknown]
  - Forced expiratory volume decreased [Unknown]
  - Therapeutic response decreased [Unknown]
  - Blood pressure systolic increased [Recovering/Resolving]
  - Incorrect dose administered [Unknown]
  - Sleep disorder [Unknown]
  - Obesity [Unknown]
  - Oropharyngeal candidiasis [Recovered/Resolved]
  - Rhinorrhoea [Unknown]
  - Cough [Recovering/Resolving]
  - Upper respiratory tract infection [Unknown]
  - Nasal congestion [Recovering/Resolving]
  - Hyposmia [Unknown]
  - Eosinophilia [Unknown]
  - Allergy to animal [Unknown]
  - Pulmonary fibrosis [Unknown]
  - Wheezing [Unknown]
  - Chronic sinusitis [Unknown]

NARRATIVE: CASE EVENT DATE: 20190115
